FAERS Safety Report 22122324 (Version 1)
Quarter: 2023Q1

REPORT INFORMATION
  Report Type: Spontaneous
  Country: ES (occurrence: ES)
  Receive Date: 20230321
  Receipt Date: 20230321
  Transmission Date: 20230417
  Serious: Yes (Life-Threatening, Hospitalization)
  Sender: FDA-Public Use
  Company Number: None

PATIENT
  Age: 6 Year
  Sex: Female
  Weight: 18.5 kg

DRUGS (1)
  1. METHYLPREDNISOLONE SODIUM SUCCINATE [Suspect]
     Active Substance: METHYLPREDNISOLONE SODIUM SUCCINATE
     Indication: Autoimmune disorder
     Dosage: 250 MG, 1X/DAY
     Route: 042
     Dates: start: 20230227, end: 20230227

REACTIONS (2)
  - Anaphylactic shock [Recovered/Resolved]
  - Distributive shock [Recovered/Resolved]

NARRATIVE: CASE EVENT DATE: 20230227
